FAERS Safety Report 6217174-2 (Version None)
Quarter: 2009Q2

REPORT INFORMATION
  Report Type: 
  Country: None (occurrence: None)
  Receive Date: 20090608
  Receipt Date: 20090522
  Transmission Date: 20091009
  Serious: Yes (Death, Other)
  Sender: FDA-Public Use
  Company Number: US-CELGENEUS-163-20785-09051696

PATIENT

DRUGS (3)
  1. THALOMID [Suspect]
     Route: 048
  2. THALOMID [Suspect]
     Dosage: 50 MG Q 21 DAYS TO A MAX DOSE OF 1,000MG
     Route: 048
  3. DACARBAZINE [Suspect]
     Route: 051

REACTIONS (7)
  - CARDIAC DISORDER [None]
  - CONSTIPATION [None]
  - FATIGUE [None]
  - NAUSEA [None]
  - OEDEMA PERIPHERAL [None]
  - PERIPHERAL SENSORY NEUROPATHY [None]
  - RASH MACULO-PAPULAR [None]
